FAERS Safety Report 20899094 (Version 14)
Quarter: 2023Q2

REPORT INFORMATION
  Report Type: Spontaneous
  Country: CA (occurrence: CA)
  Receive Date: 20220601
  Receipt Date: 20230602
  Transmission Date: 20230721
  Serious: Yes (Other)
  Sender: FDA-Public Use
  Company Number: CA-CELLTRION INC.-2021CA018362

PATIENT

DRUGS (32)
  1. INFLECTRA [Suspect]
     Active Substance: INFLIXIMAB-DYYB
     Indication: Crohn^s disease
     Dosage: AT 0, 2, 6, THEN EVERY 8 WEEKS
     Route: 042
     Dates: start: 20211213
  2. INFLECTRA [Suspect]
     Active Substance: INFLIXIMAB-DYYB
     Dosage: AT 0, 2, 6, THEN EVERY 8 WEEKS
     Route: 042
     Dates: start: 20211227
  3. INFLECTRA [Suspect]
     Active Substance: INFLIXIMAB-DYYB
     Dosage: AT 0, 2, 6, THEN EVERY 8 WEEKS
     Route: 042
     Dates: start: 20220125
  4. INFLECTRA [Suspect]
     Active Substance: INFLIXIMAB-DYYB
     Dosage: AT 0, 2, 6, THEN EVERY 8 WEEKS
     Route: 042
     Dates: start: 20220322
  5. INFLECTRA [Suspect]
     Active Substance: INFLIXIMAB-DYYB
     Dosage: AT 0, 2, 6, THEN EVERY 8 WEEKS
     Route: 042
     Dates: start: 20220516
  6. INFLECTRA [Suspect]
     Active Substance: INFLIXIMAB-DYYB
     Dosage: AT 0, 2, 6, THEN EVERY 8 WEEKS
     Route: 042
     Dates: start: 20220711
  7. INFLECTRA [Suspect]
     Active Substance: INFLIXIMAB-DYYB
     Dosage: AT 0, 2, 6, THEN EVERY 8 WEEKS
     Route: 042
     Dates: start: 20220906
  8. INFLECTRA [Suspect]
     Active Substance: INFLIXIMAB-DYYB
     Dosage: AT 0, 2, 6, THEN EVERY 8 WEEKS
     Route: 042
     Dates: start: 20221031
  9. INFLECTRA [Suspect]
     Active Substance: INFLIXIMAB-DYYB
     Dosage: AT 0, 2, 6, THEN EVERY 8 WEEKS
     Route: 042
     Dates: start: 20221227
  10. INFLECTRA [Suspect]
     Active Substance: INFLIXIMAB-DYYB
     Dosage: EVERY 8 WEEKS
     Route: 042
     Dates: start: 20230221
  11. INFLECTRA [Suspect]
     Active Substance: INFLIXIMAB-DYYB
     Dosage: EVERY 8 WEEKS
     Route: 042
     Dates: start: 20230418
  12. INFLECTRA [Suspect]
     Active Substance: INFLIXIMAB-DYYB
     Dosage: EVERY 8 WEEKS
     Route: 042
     Dates: start: 20230525, end: 20230525
  13. AZATHIOPRINE [Concomitant]
     Active Substance: AZATHIOPRINE
     Dosage: UNK
  14. AZATHIOPRINE [Concomitant]
     Active Substance: AZATHIOPRINE
     Dosage: 50 MG ,FREQUENCY: UNKNOWN
     Route: 065
  15. DETROL [Concomitant]
     Active Substance: TOLTERODINE TARTRATE
     Dosage: 1 DF
  16. DILTIAZEM [Concomitant]
     Active Substance: DILTIAZEM
     Dosage: UNK
  17. DILTIAZEM [Concomitant]
     Active Substance: DILTIAZEM
     Dosage: 120 MG ,FREQUENCY: UNKNOWN
     Route: 065
  18. FOLIC ACID [Concomitant]
     Active Substance: FOLIC ACID
     Dosage: 1 MG, 1X/DAY EXCEPT ON FRIDAYS)
     Route: 048
  19. IMURAN [Concomitant]
     Active Substance: AZATHIOPRINE
     Dosage: UNK
  20. LOSEC [Concomitant]
     Active Substance: OMEPRAZOLE
     Dosage: UNK
  21. LOSEC [Concomitant]
     Active Substance: OMEPRAZOLE
     Dosage: 20 MG ,FREQUENCY: UNKNOWN
     Route: 065
  22. METHOTREXATE [Concomitant]
     Active Substance: METHOTREXATE
     Dosage: 15 MG, WEEKLY (ON FRIDAYS)
     Route: 058
  23. PREDNISONE [Concomitant]
     Active Substance: PREDNISONE
     Dosage: 50 MG, 1X/DAY (TAPPERING)
     Route: 048
  24. PREDNISONE [Concomitant]
     Active Substance: PREDNISONE
     Dosage: 50 MG, 1X/DAY, TAPERING. CURRENTLY ON 5 MG
     Route: 048
  25. PREGABALIN [Concomitant]
     Active Substance: PREGABALIN
     Dosage: 1 DF
     Route: 065
  26. PREMARIN [Concomitant]
     Active Substance: ESTROGENS, CONJUGATED
     Dosage: UNK
  27. PREMARIN [Concomitant]
     Active Substance: ESTROGENS, CONJUGATED
     Dosage: 65 MG ,FREQUENCY: UNKNOWN
     Route: 065
  28. PROPAFENONE HYDROCHLORIDE [Concomitant]
     Active Substance: PROPAFENONE HYDROCHLORIDE
     Dosage: 1 DF
  29. SULFASALAZINE [Concomitant]
     Active Substance: SULFASALAZINE
     Dosage: 1 DF
  30. SULFASALAZINE [Concomitant]
     Active Substance: SULFASALAZINE
     Dosage: 1500 MG, 3X/DAY
     Route: 065
  31. XARELTO [Concomitant]
     Active Substance: RIVAROXABAN
     Dosage: UNK
  32. XARELTO [Concomitant]
     Active Substance: RIVAROXABAN
     Dosage: 20 MG ,FREQUENCY: UNKNOWN
     Route: 065

REACTIONS (23)
  - Condition aggravated [Not Recovered/Not Resolved]
  - Flushing [Recovered/Resolved]
  - Burning sensation [Recovered/Resolved]
  - Feeling hot [Recovered/Resolved]
  - Pain [Recovered/Resolved]
  - Cough [Recovered/Resolved]
  - Off label use [Unknown]
  - Intentional product use issue [Unknown]
  - Drug ineffective [Unknown]
  - Anal fissure [Recovered/Resolved]
  - Anal fistula [Unknown]
  - Urticaria [Unknown]
  - Malaise [Recovered/Resolved]
  - Abdominal pain lower [Recovered/Resolved]
  - Musculoskeletal chest pain [Recovered/Resolved]
  - Pain in jaw [Recovered/Resolved]
  - Arthralgia [Not Recovered/Not Resolved]
  - Abscess [Unknown]
  - Constipation [Not Recovered/Not Resolved]
  - Chest pain [Unknown]
  - Chest discomfort [Recovered/Resolved]
  - Erythema [Recovered/Resolved]
  - Flushing [Recovered/Resolved]

NARRATIVE: CASE EVENT DATE: 20211213
